FAERS Safety Report 6719118-3 (Version None)
Quarter: 2010Q2

REPORT INFORMATION
  Report Type: 
  Country: None (occurrence: None)
  Receive Date: 20100511
  Receipt Date: 20100504
  Transmission Date: 20101027
  Serious: Yes (Other)
  Sender: FDA-Public Use
  Company Number: US-ASTRAZENECA-2009UW20452

PATIENT
  Age: 43 Year
  Sex: Male
  Weight: 96.2 kg

DRUGS (7)
  1. SEROQUEL [Suspect]
     Indication: SCHIZOPHRENIA, PARANOID TYPE
     Route: 048
     Dates: start: 20040101, end: 20070101
  2. ABILIFY [Concomitant]
     Dates: start: 20040101, end: 20060101
  3. ABILIFY [Concomitant]
     Dates: start: 20091101
  4. GEODON [Concomitant]
  5. HALDOL [Concomitant]
     Dates: start: 19900101, end: 20000101
  6. RISPERDAL [Concomitant]
     Dates: start: 20050101
  7. ZYPREXA [Concomitant]

REACTIONS (4)
  - COLON CANCER [None]
  - DIABETES MELLITUS [None]
  - SOMNOLENCE [None]
  - TYPE 2 DIABETES MELLITUS [None]
